FAERS Safety Report 9413125 (Version 2)
Quarter: 2013Q3

REPORT INFORMATION
  Report Type: Report from Study
  Country: US (occurrence: US)
  Receive Date: 20130722
  Receipt Date: 20130816
  Transmission Date: 20140515
  Serious: Yes (Hospitalization)
  Sender: FDA-Public Use
  Company Number: US-US-EMD SERONO, INC.-7224831

PATIENT
  Age: 51 Year
  Sex: Male

DRUGS (2)
  1. REBIF [Suspect]
     Indication: MULTIPLE SCLEROSIS
     Route: 058
     Dates: start: 20130420
  2. NITRO                              /00003201/ [Concomitant]
     Indication: MICTURITION DISORDER

REACTIONS (3)
  - Calculus bladder [Recovered/Resolved]
  - Muscular weakness [Recovered/Resolved]
  - Feeling hot [Unknown]
